FAERS Safety Report 8183003-3 (Version None)
Quarter: 2012Q1

REPORT INFORMATION
  Report Type: 
  Country: None (occurrence: None)
  Receive Date: 20120305
  Receipt Date: 20111114
  Transmission Date: 20120608
  Serious: No
  Sender: FDA-Public Use
  Company Number: PR-BRISTOL-MYERS SQUIBB COMPANY-16230526

PATIENT
  Age: 62 Year
  Sex: Female

DRUGS (3)
  1. BENICAR [Concomitant]
     Dosage: STARTED 3 YEARS PRIOR TO TIME OF REPORT
  2. KOMBIGLYZE XR [Suspect]
     Dosage: 1DF:5/1000MG
     Dates: start: 20110101
  3. COREG [Concomitant]
     Dosage: STARTED 3 YEARS PRIOR TO TIME OF REPORT

REACTIONS (1)
  - RESPIRATORY DISORDER [None]
